FAERS Safety Report 6864237-4 (Version None)
Quarter: 2010Q3

REPORT INFORMATION
  Report Type: 
  Country: None (occurrence: None)
  Receive Date: 20100720
  Receipt Date: 20100712
  Transmission Date: 20110219
  Serious: Yes (Hospitalization, Other)
  Sender: FDA-Public Use
  Company Number: 011689

PATIENT
  Sex: Female
  Weight: 150 kg

DRUGS (4)
  1. KEPPRA [Suspect]
     Indication: CONVULSION
     Dosage: (1500 MG ORAL) ; (1250 MG ORAL)
     Route: 048
     Dates: start: 20080901
  2. DEPAKOTE [Concomitant]
  3. SODIUM BICARBONATE [Concomitant]
  4. ANTIHYPERTENSIVES [Concomitant]

REACTIONS (4)
  - ASPIRATION [None]
  - CEREBROVASCULAR ACCIDENT [None]
  - DYSPHAGIA [None]
  - LETHARGY [None]
